FAERS Safety Report 9353652 (Version 1)
Quarter: 2013Q2

REPORT INFORMATION
  Report Type: Spontaneous
  Country: US (occurrence: US)
  Receive Date: 20130618
  Receipt Date: 20130618
  Transmission Date: 20140414
  Serious: No
  Sender: FDA-Public Use
  Company Number: US-BAYER-2013-073278

PATIENT
  Age: 84 Year
  Sex: Male

DRUGS (1)
  1. CIPRO [Suspect]

REACTIONS (3)
  - Screaming [None]
  - Malaise [None]
  - Crying [None]
